FAERS Safety Report 25329944 (Version 1)
Quarter: 2025Q2

REPORT INFORMATION
  Report Type: Spontaneous
  Country: ES (occurrence: ES)
  Receive Date: 20250519
  Receipt Date: 20250519
  Transmission Date: 20250716
  Serious: Yes (Hospitalization, Other)
  Sender: TEVA
  Company Number: None

PATIENT
  Age: 77 Year
  Sex: Female

DRUGS (12)
  1. RISPERIDONE [Suspect]
     Active Substance: RISPERIDONE
     Indication: Craniocerebral injury
     Dosage: 0.25 EVERY 12 HOURS ORAL, RISPERIDONE (7201A)
     Route: 048
     Dates: start: 20250105, end: 20250107
  2. VALPROIC ACID [Suspect]
     Active Substance: VALPROIC ACID
     Indication: Craniocerebral injury
     Route: 042
     Dates: start: 20250103, end: 20250103
  3. CLONAZEPAM [Suspect]
     Active Substance: CLONAZEPAM
     Indication: Agitation
     Dosage: CLONAZEPAM (635A)
     Route: 042
     Dates: start: 20250106, end: 20250107
  4. LEVETIRACETAM [Concomitant]
     Active Substance: LEVETIRACETAM
     Indication: Craniocerebral injury
     Dosage: INJECTABLE INFUSION 5 ML
     Route: 042
     Dates: start: 20241229
  5. BETAHISTINE [Suspect]
     Active Substance: BETAHISTINE
     Indication: Vertigo
     Dosage: 60 TABLETS
     Route: 048
     Dates: start: 20241218, end: 20241224
  6. ESOMEPRAZOLE [Suspect]
     Active Substance: ESOMEPRAZOLE
     Indication: Prophylaxis
     Route: 042
     Dates: start: 20241231, end: 20250107
  7. QUETIAPINE [Concomitant]
     Active Substance: QUETIAPINE
     Indication: Agitation
     Route: 048
     Dates: start: 20250101, end: 20250117
  8. PHENYTOIN SODIUM [Suspect]
     Active Substance: PHENYTOIN SODIUM
     Indication: Generalised tonic-clonic seizure
     Dosage: PHENYTOIN SODIUM (1334SO)
     Route: 042
     Dates: start: 20241230, end: 20250102
  9. PHENYTOIN SODIUM [Suspect]
     Active Substance: PHENYTOIN SODIUM
     Indication: Generalised tonic-clonic seizure
     Dosage: PHENYTOIN SODIUM (1334SO)
     Route: 042
     Dates: start: 20250102, end: 20250110
  10. MIRTAZAPINE [Concomitant]
     Active Substance: MIRTAZAPINE
     Indication: Product used for unknown indication
     Dates: start: 20250101
  11. HALOPERIDOL [Suspect]
     Active Substance: HALOPERIDOL
     Indication: Agitation
     Dosage: INJECTABLE 1 ML
     Route: 030
     Dates: start: 20241229, end: 20250107
  12. LEVOFLOXACIN [Suspect]
     Active Substance: LEVOFLOXACIN
     Indication: Infection
     Dosage: 7 TABLETS
     Route: 048
     Dates: start: 20241215, end: 20241222

REACTIONS (1)
  - Toxic skin eruption [Recovered/Resolved]

NARRATIVE: CASE EVENT DATE: 20250108
